FAERS Safety Report 14974812 (Version 6)
Quarter: 2018Q3

REPORT INFORMATION
  Report Type: Spontaneous
  Country: US (occurrence: US)
  Receive Date: 20180605
  Receipt Date: 20180924
  Transmission Date: 20181010
  Serious: Yes (Other)
  Sender: FDA-Public Use
  Company Number: US-IMPAX LABORATORIES, INC-2018-IPXL-01895

PATIENT
  Sex: Male
  Weight: 97 kg

DRUGS (5)
  1. RYTARY [Suspect]
     Active Substance: CARBIDOPA\LEVODOPA
     Dosage: 61.25/245 MG 3 CAPSULES 4 TIMES A DAY
     Route: 048
     Dates: start: 20180524
  2. CARBIDOPA?LEVODOPA ER [Suspect]
     Active Substance: CARBIDOPA\LEVODOPA
     Indication: PARKINSON^S DISEASE
     Dosage: UNK
     Route: 065
  3. VITAMIN D [Concomitant]
     Active Substance: CHOLECALCIFEROL
     Indication: PRODUCT USED FOR UNKNOWN INDICATION
     Dosage: 50000 IU,ONCE OR TWICE WEEKLY
     Route: 048
  4. RYTARY [Suspect]
     Active Substance: CARBIDOPA\LEVODOPA
     Indication: PARKINSON^S DISEASE
     Dosage: 61.25/245 MG 3 CAPSULES 4 TIMES A DAY
     Route: 048
     Dates: start: 2017, end: 20180519
  5. MIRAPEX [Concomitant]
     Active Substance: PRAMIPEXOLE DIHYDROCHLORIDE
     Indication: PRODUCT USED FOR UNKNOWN INDICATION
     Dosage: 1.5 MG, TID
     Route: 048

REACTIONS (7)
  - Mobility decreased [Recovered/Resolved]
  - Muscle rigidity [Recovered/Resolved]
  - Meniscus injury [Not Recovered/Not Resolved]
  - Freezing phenomenon [Recovered/Resolved]
  - Cellulitis [Recovering/Resolving]
  - Therapy cessation [Unknown]
  - Prescribed overdose [Unknown]

NARRATIVE: CASE EVENT DATE: 2017
